FAERS Safety Report 5709230-X (Version None)
Quarter: 2008Q2

REPORT INFORMATION
  Report Type: 
  Country: None (occurrence: None)
  Receive Date: 20080418
  Receipt Date: 20080410
  Transmission Date: 20081010
  Serious: Yes (Death)
  Sender: FDA-Public Use
  Company Number: US-AVENTIS-200811477EU

PATIENT
  Age: 75 Year
  Sex: Male

DRUGS (6)
  1. ENOXAPARIN SODIUM [Suspect]
     Indication: THROMBOSIS PROPHYLAXIS
     Route: 058
     Dates: start: 20080305, end: 20080310
  2. PLACEBO [Suspect]
     Indication: THROMBOSIS PROPHYLAXIS
     Route: 048
     Dates: start: 20080305, end: 20080316
  3. THEOPHYLLINE [Concomitant]
     Dates: start: 20070919
  4. SALMETEROL+FLUTICASONE [Concomitant]
     Dates: start: 20080213
  5. IPRATROPIUM BROMIDE [Concomitant]
     Dates: start: 20080213
  6. OXYGEN THERAPY [Concomitant]

REACTIONS (1)
  - SUDDEN DEATH [None]
